FAERS Safety Report 7707861-9 (Version None)
Quarter: 2011Q3

REPORT INFORMATION
  Report Type: 
  Country: None (occurrence: None)
  Receive Date: 20110824
  Receipt Date: 20110222
  Transmission Date: 20111222
  Serious: Yes (Other)
  Sender: FDA-Public Use
  Company Number: US-BAYER-200933976NA

PATIENT
  Age: 66 Year
  Sex: Female
  Weight: 100 kg

DRUGS (28)
  1. MAGNEVIST [Suspect]
  2. ARANESP [Concomitant]
  3. APRESOLINE [Concomitant]
     Dosage: 50 MG, TWO TABLETS DAILY
  4. PLAVIX [Concomitant]
  5. CLONIDINE [Concomitant]
     Dosage: 0.2 MG, BID
  6. LISINOPRIL [Concomitant]
     Dosage: 20 MG, QD
  7. ASPIRIN [Concomitant]
     Dosage: 81 MG, QD
  8. AMBIEN [Concomitant]
  9. MULTI-VITAMIN [Concomitant]
  10. GLIPIZIDE [Concomitant]
  11. ACTOS [Concomitant]
     Dosage: 30 MG, QD
  12. HYDRALAZINE HCL [Concomitant]
     Dosage: 50 MG, BID
  13. ALLOPURINOL [Concomitant]
     Dosage: 300 MG, UNK
  14. AVANDIA [Concomitant]
     Dosage: 8 MG, QD
  15. MAGNEVIST [Suspect]
     Indication: NUCLEAR MAGNETIC RESONANCE IMAGING ABDOMINAL
     Dosage: 2.5ML/SEC
     Route: 042
     Dates: start: 20051228, end: 20051228
  16. FUROSEMIDE [Concomitant]
     Dosage: 20 MG, TWO TABLETS DAILY
  17. MIRALAX [Concomitant]
  18. INDOMETHACIN [Concomitant]
     Dosage: 75 MG, TWO DAILY
  19. SODIUM BICARBONATE [Concomitant]
     Dosage: 650 MG, TID
  20. MAGNEVIST [Suspect]
  21. NORVASC [Concomitant]
     Dosage: 10 MG, HS
  22. ISOSORBIDE MONONITRATE [Concomitant]
     Dosage: 60 MG, QD
  23. ATENOLOL [Concomitant]
     Dosage: 50 MG, BID
  24. FERROUS SULFATE TAB [Concomitant]
     Dosage: 325 MG, TID
  25. COLCHICINE [Concomitant]
     Dosage: 0.6 MG, BID
  26. XANAX [Concomitant]
     Dosage: 0.5 MG, QID
  27. SEVELAMER [Concomitant]
  28. PROCRIT [Concomitant]

REACTIONS (16)
  - NEPHROGENIC SYSTEMIC FIBROSIS [None]
  - SKIN INDURATION [None]
  - SKIN DISORDER [None]
  - SKIN HYPERTROPHY [None]
  - PAIN [None]
  - SKIN EXFOLIATION [None]
  - DERMATITIS [None]
  - RASH MACULAR [None]
  - RASH [None]
  - SKIN PLAQUE [None]
  - PEAU D'ORANGE [None]
  - PRURITUS [None]
  - HYPOAESTHESIA [None]
  - SKIN ATROPHY [None]
  - SKIN MASS [None]
  - ALOPECIA [None]
